FAERS Safety Report 11311524 (Version 2)
Quarter: 2015Q3

REPORT INFORMATION
  Report Type: Spontaneous
  Country: US (occurrence: US)
  Receive Date: 20150727
  Receipt Date: 20150917
  Transmission Date: 20151125
  Serious: Yes (Other)
  Sender: FDA-Public Use
  Company Number: US-JNJFOC-20150711200

PATIENT
  Age: 27 Year
  Sex: Female

DRUGS (1)
  1. ORTHO NOVUM 1/35 [Suspect]
     Active Substance: ETHINYL ESTRADIOL\NORETHINDRONE
     Indication: BREAST DISORDER
     Dosage: 35 MCG ETHINYL ESTRADIOL AND 1.0 MG NORETHINDRONE
     Route: 065
     Dates: start: 19980918, end: 2006

REACTIONS (1)
  - Invasive ductal breast carcinoma [Unknown]
